FAERS Safety Report 5259743-2 (Version None)
Quarter: 2007Q1

REPORT INFORMATION
  Report Type: 
  Country: None (occurrence: None)
  Receive Date: 20070309
  Receipt Date: 20070228
  Transmission Date: 20070707
  Serious: No
  Sender: FDA-Public Use
  Company Number: 2006UW08145

PATIENT
  Age: 13584 Day
  Sex: Female
  Weight: 66.8 kg

DRUGS (4)
  1. SEROQUEL [Suspect]
     Route: 048
     Dates: start: 20030101, end: 20050917
  2. GEODON [Concomitant]
     Dates: start: 20030101
  3. CYMBALTA [Concomitant]
  4. KLONOPIN [Concomitant]

REACTIONS (1)
  - DIABETES MELLITUS [None]
